APPROVED DRUG PRODUCT: URISPAS
Active Ingredient: FLAVOXATE HYDROCHLORIDE
Strength: 100MG
Dosage Form/Route: TABLET;ORAL
Application: N016769 | Product #001
Applicant: ORTHO MCNEIL JANSSEN PHARMACEUTICALS INC
Approved: Approved Prior to Jan 1, 1982 | RLD: No | RS: No | Type: DISCN